FAERS Safety Report 7308048-4 (Version None)
Quarter: 2011Q1

REPORT INFORMATION
  Report Type: 
  Country: None (occurrence: None)
  Receive Date: 20110223
  Receipt Date: 20110209
  Transmission Date: 20110831
  Serious: Yes (Other)
  Sender: FDA-Public Use
  Company Number: RO-TEVA-266336ISR

PATIENT
  Sex: Male

DRUGS (3)
  1. CISPLATIN [Concomitant]
     Indication: TRACHEAL CANCER
     Route: 042
     Dates: start: 20101207
  2. ETOPOSIDE [Suspect]
     Indication: TRACHEAL CANCER
     Route: 042
     Dates: start: 20101207, end: 20101212
  3. ETOPOSIDE [Suspect]
     Route: 042

REACTIONS (2)
  - PRURITUS [None]
  - METASTASES TO SKIN [None]
